FAERS Safety Report 10346224 (Version 3)
Quarter: 2014Q3

REPORT INFORMATION
  Report Type: Spontaneous
  Country: JP (occurrence: JP)
  Receive Date: 20140728
  Receipt Date: 20140918
  Transmission Date: 20150326
  Serious: Yes (Death, Hospitalization, Other)
  Sender: FDA-Public Use
  Company Number: JP-ASTRAZENECA-2014SE54463

PATIENT
  Age: 81 Year
  Sex: Female

DRUGS (5)
  1. MEROPEN [Suspect]
     Active Substance: MEROPENEM
     Indication: LUNG INFECTION
     Route: 041
     Dates: start: 20140718, end: 20140723
  2. DALACIN-S [Concomitant]
     Active Substance: CLINDAMYCIN\CLINDAMYCIN PHOSPHATE
     Indication: LUNG INFECTION
     Route: 042
     Dates: start: 20140721, end: 20140723
  3. LITHIUM CARBONATE. [Concomitant]
     Active Substance: LITHIUM CARBONATE
     Indication: BIPOLAR I DISORDER
     Route: 048
     Dates: end: 20140717
  4. BAYASPIRIN (NON AZ PRODUCT) [Suspect]
     Active Substance: ASPIRIN
     Indication: MYOCARDIAL ISCHAEMIA
     Route: 048
     Dates: end: 20140717
  5. WARFARIN [Suspect]
     Active Substance: WARFARIN
     Route: 048
     Dates: end: 20140717

REACTIONS (9)
  - Coagulation factor deficiency [Fatal]
  - Haemorrhagic diathesis [Fatal]
  - Infectious pleural effusion [Recovering/Resolving]
  - Pain in extremity [Unknown]
  - Haemothorax [Fatal]
  - Pneumonia bacterial [Fatal]
  - Respiratory failure [Fatal]
  - Peripheral swelling [Unknown]
  - Pulmonary haemorrhage [Fatal]

NARRATIVE: CASE EVENT DATE: 201407
